FAERS Safety Report 10221090 (Version 1)
Quarter: 2014Q2

REPORT INFORMATION
  Report Type: Report from Study
  Country: US (occurrence: None)
  Receive Date: 20140604
  Receipt Date: 20140604
  Transmission Date: 20141212
  Serious: Yes (Hospitalization)
  Sender: FDA-Public Use
  Company Number: TH-2014-00107

PATIENT
  Age: 46 Year
  Sex: Female
  Weight: 80.73 kg

DRUGS (6)
  1. EGRIFTA [Suspect]
     Indication: PRODUCT USED FOR UNKNOWN INDICATION
  2. PRILOSEC (OMEPRAZOLE) [Concomitant]
  3. ATRIPLA(EMTRICITABINE, EFAVIRENZ, TENOFOVIR DISOPROXIL FUMARATE) [Concomitant]
  4. ALBUTEROL (SALBUTAMOL) [Concomitant]
  5. GABAPENTIN (GABAPENTIN) [Concomitant]
  6. HYDROCHLOROTHIAZIDE (HYDROCHLOROTHIAZIDE) [Concomitant]

REACTIONS (1)
  - Transient ischaemic attack [None]
